FAERS Safety Report 6917665-2 (Version None)
Quarter: 2010Q3

REPORT INFORMATION
  Report Type: 
  Country: None (occurrence: None)
  Receive Date: 20100810
  Receipt Date: 20100727
  Transmission Date: 20110219
  Serious: Yes (Hospitalization)
  Sender: FDA-Public Use
  Company Number: FR-MYLANLABS-2010S1013482

PATIENT
  Age: 74 Year
  Sex: Female

DRUGS (6)
  1. HYDROXYZINE [Suspect]
     Indication: PREMEDICATION
     Route: 048
  2. DROPERIDOL [Suspect]
     Indication: GENERAL ANAESTHESIA
     Route: 042
  3. PROPOFOL [Concomitant]
     Indication: GENERAL ANAESTHESIA
     Route: 042
  4. MIDAZOLAM HCL [Concomitant]
     Indication: GENERAL ANAESTHESIA
     Route: 042
  5. SUFENTANIL [Concomitant]
     Indication: GENERAL ANAESTHESIA
     Route: 042
  6. PRAMIPEXOLE DIHYDROCHLORIDE [Concomitant]
     Indication: RESTLESS LEGS SYNDROME
     Dosage: 0.09MG AT 6PM, 0.18MG AT 10PM
     Route: 065

REACTIONS (1)
  - RESTLESS LEGS SYNDROME [None]
